FAERS Safety Report 9400239 (Version 2)
Quarter: 2013Q3

REPORT INFORMATION
  Report Type: Spontaneous
  Country: FR (occurrence: FR)
  Receive Date: 20130715
  Receipt Date: 20130801
  Transmission Date: 20140515
  Serious: Yes (Other)
  Sender: FDA-Public Use
  Company Number: FR-PFIZER INC-2013204304

PATIENT
  Age: 58 Year
  Sex: Female

DRUGS (4)
  1. LYRICA [Suspect]
     Indication: PAIN
     Dosage: 75 MG ONCE DAILY AT BEDTIME
  2. LYRICA [Suspect]
     Indication: PARAESTHESIA
  3. SKENAN [Concomitant]
     Indication: CERVICOBRACHIAL SYNDROME
     Dosage: 60 MG, 2X/DAY
     Route: 048
     Dates: start: 2010
  4. IMIJECT [Concomitant]
     Indication: CLUSTER HEADACHE
     Dosage: 0.5 DF,  1 TO 2 TIMES DAILY
     Dates: start: 2000

REACTIONS (10)
  - Cluster headache [Unknown]
  - Pain [Recovered/Resolved]
  - Eye pain [Recovered/Resolved]
  - Headache [Unknown]
  - Eye disorder [Recovered/Resolved]
  - Eye irritation [Recovered/Resolved]
  - Burning sensation [Recovered/Resolved]
  - Somnolence [Recovered/Resolved]
  - Nocturnal fear [Unknown]
  - Intentional drug misuse [Unknown]
